FAERS Safety Report 8318974-5 (Version None)
Quarter: 2012Q2

REPORT INFORMATION
  Report Type: 
  Country: None (occurrence: None)
  Receive Date: 20120427
  Receipt Date: 20120420
  Transmission Date: 20120825
  Serious: Yes (Other)
  Sender: FDA-Public Use
  Company Number: US-JNJFOC-20120406099

PATIENT
  Age: 62 Year
  Sex: Male
  Weight: 90.72 kg

DRUGS (4)
  1. VIMOVO [Concomitant]
     Indication: BURSITIS
     Dosage: 500-20 MG
     Route: 065
     Dates: start: 20120215
  2. ASPIRIN [Concomitant]
     Indication: CARDIOVASCULAR EVENT PROPHYLAXIS
     Dosage: FOR YEARS
     Route: 065
  3. METHYL SALICYLATE MENTHOLCAMPHOR ONT [Suspect]
     Indication: BURSITIS
     Dosage: DIME-SIZED AMOUNT
     Route: 061
     Dates: start: 20120220, end: 20120328
  4. VYTORIN [Concomitant]
     Indication: BLOOD CHOLESTEROL
     Dosage: 40-20, FOR YEARS
     Route: 065

REACTIONS (5)
  - APPLICATION SITE BURN [None]
  - EXPIRED DRUG ADMINISTERED [None]
  - SKIN EXFOLIATION [None]
  - PRODUCT QUALITY ISSUE [None]
  - APPLICATION SITE SCAB [None]
